FAERS Safety Report 7990328-0 (Version None)
Quarter: 2011Q4

REPORT INFORMATION
  Report Type: 
  Country: None (occurrence: None)
  Receive Date: 20111215
  Receipt Date: 20111129
  Transmission Date: 20120403
  Serious: Yes (Death, Hospitalization)
  Sender: FDA-Public Use
  Company Number: DAV-AE-MTX-11-057

PATIENT
  Age: 32 Year
  Sex: Female

DRUGS (4)
  1. LEUCOVORIN CALCIUM [Concomitant]
  2. CYCLOPHOSPHAMIDE [Concomitant]
  3. LEUCOVORIN CALCIUM [Concomitant]
  4. METHOTREXATE [Suspect]
     Indication: BREAST CANCER

REACTIONS (3)
  - FEBRILE NEUTROPENIA [None]
  - SEPSIS [None]
  - HAEMODYNAMIC INSTABILITY [None]
